FAERS Safety Report 10946997 (Version 1)
Quarter: 2015Q1

REPORT INFORMATION
  Report Type: Spontaneous
  Country: US (occurrence: None)
  Receive Date: 20150212
  Receipt Date: 20150212
  Transmission Date: 20150721
  Serious: No
  Sender: FDA-Public Use
  Company Number: TPA2011A00720

PATIENT
  Sex: Female

DRUGS (3)
  1. ULORIC [Suspect]
     Active Substance: FEBUXOSTAT
     Indication: BLOOD URIC ACID INCREASED
     Dosage: 1 IN 1 DAY
     Route: 048
  2. MULTIPLE UNKNOWN MEDICATIONS (ALL OTHER THERAPEUTIC PRODUCTS) [Concomitant]
  3. ULORIC [Suspect]
     Active Substance: FEBUXOSTAT
     Indication: GOUT
     Dosage: 1 IN 1 DAY
     Route: 048

REACTIONS (1)
  - Arthralgia [None]
